FAERS Safety Report 9501690 (Version 1)
Quarter: 2013Q3

REPORT INFORMATION
  Report Type: Spontaneous
  Country: GB (occurrence: GB)
  Receive Date: 20130905
  Receipt Date: 20130905
  Transmission Date: 20140515
  Serious: Yes (Other)
  Sender: FDA-Public Use
  Company Number: GB-TEVA-429707ISR

PATIENT
  Age: 79 Year
  Sex: Male
  Weight: 90 kg

DRUGS (12)
  1. METFORMIN [Suspect]
     Indication: TYPE 2 DIABETES MELLITUS
     Dosage: 1000 MILLIGRAM DAILY;
     Route: 048
     Dates: start: 20130601, end: 20130807
  2. LORAZEPAM [Concomitant]
  3. ORAMORPH [Concomitant]
  4. BICALUTAMIDE [Concomitant]
  5. TIOTROPIUM [Concomitant]
  6. ASPIRIN [Concomitant]
  7. CANDESARTAN [Concomitant]
  8. FUROSEMIDE [Concomitant]
  9. LUMIGAN [Concomitant]
  10. SERETIDE [Concomitant]
  11. VENTOLIN [Concomitant]
  12. SIMVASTATIN [Concomitant]

REACTIONS (4)
  - Somnolence [Recovered/Resolved]
  - Confusional state [Recovered/Resolved]
  - Speech disorder [Recovered/Resolved]
  - Malaise [Recovered/Resolved]
